FAERS Safety Report 6198674-0 (Version None)
Quarter: 2009Q2

REPORT INFORMATION
  Report Type: 
  Country: None (occurrence: None)
  Receive Date: 20090521
  Receipt Date: 20090513
  Transmission Date: 20091009
  Serious: Yes (Hospitalization, Other)
  Sender: FDA-Public Use
  Company Number: US-ELI_LILLY_AND_COMPANY-US200905002583

PATIENT
  Sex: Male

DRUGS (9)
  1. ZYPREXA [Suspect]
     Indication: SCHIZOPHRENIA
     Dates: start: 19990101
  2. FUROSEMIDE [Concomitant]
     Dosage: 20 MG, 2/D
  3. VIAGRA [Concomitant]
     Indication: SEXUAL DYSFUNCTION
     Dosage: 20 MG, 2/D
  4. PAROXETINE HCL [Concomitant]
     Dosage: UNK, 2/D
  5. SIMVASTATIN [Concomitant]
     Dosage: 40 MG, 2/D
  6. BENAZEPRIL HYDROCHLORIDE [Concomitant]
     Dosage: 10 MG, 2/D
  7. DIGOXIN [Concomitant]
     Dosage: 0.125 MG, UNK
  8. OXYGEN [Concomitant]
     Dates: start: 20081201
  9. DOCUSATE SODIUM [Concomitant]
     Dosage: 250 MG, 2/D

REACTIONS (8)
  - CORONARY ARTERY BYPASS [None]
  - DIABETES MELLITUS [None]
  - HYPERGLYCAEMIA [None]
  - HYPOGLYCAEMIA [None]
  - SEXUAL DYSFUNCTION [None]
  - SUICIDAL IDEATION [None]
  - VISUAL ACUITY REDUCED [None]
  - WEIGHT INCREASED [None]
